FAERS Safety Report 8633943 (Version 2)
Quarter: 2013Q3

REPORT INFORMATION
  Report Type: Spontaneous
  Country: ES (occurrence: ES)
  Receive Date: 20120626
  Receipt Date: 20130725
  Transmission Date: 20140515
  Serious: Yes (Other)
  Sender: FDA-Public Use
  Company Number: ES-AMGEN-ESPSP2012037818

PATIENT
  Age: 38 Year
  Sex: Female
  Weight: 70 kg

DRUGS (1)
  1. ENBREL [Suspect]
     Indication: PSORIASIS
     Dosage: 50 UNK, UNK
     Route: 065
     Dates: start: 20040218, end: 20040710

REACTIONS (2)
  - Hepatic function abnormal [Recovered/Resolved]
  - Autoimmune hepatitis [Recovered/Resolved]
